FAERS Safety Report 10725627 (Version 4)
Quarter: 2015Q2

REPORT INFORMATION
  Report Type: Spontaneous
  Country: JP (occurrence: JP)
  Receive Date: 20150121
  Receipt Date: 20150427
  Transmission Date: 20150821
  Serious: Yes (Life-Threatening, Hospitalization, Other)
  Sender: FDA-Public Use
  Company Number: JP-BRISTOL-MYERS SQUIBB COMPANY-BMS-2015-001725

PATIENT
  Age: 74 Year
  Sex: Male
  Weight: 35 kg

DRUGS (6)
  1. ERBITUX [Suspect]
     Active Substance: CETUXIMAB
     Dosage: 250 MG/M2, QWK
     Route: 041
     Dates: start: 20140605, end: 20140729
  2. CHLOR-TRIMETON [Concomitant]
     Active Substance: CHLORPHENIRAMINE MALEATE
     Indication: OROPHARYNGEAL CANCER
     Dosage: 10 MG, QWK
     Route: 042
     Dates: start: 20140605, end: 20140729
  3. ERBITUX [Suspect]
     Active Substance: CETUXIMAB
     Indication: OROPHARYNGEAL CANCER
     Dosage: 40 MG/M2, QWK
     Route: 041
     Dates: start: 20140605, end: 20140729
  4. CRAVIT [Suspect]
     Active Substance: LEVOFLOXACIN
     Indication: PRODUCT USED FOR UNKNOWN INDICATION
     Route: 065
  5. MEROPENEM. [Suspect]
     Active Substance: MEROPENEM
     Indication: PRODUCT USED FOR UNKNOWN INDICATION
     Dosage: UNK
     Route: 065
  6. DEXART [Concomitant]
     Active Substance: DEXAMETHASONE SODIUM PHOSPHATE
     Indication: OROPHARYNGEAL CANCER
     Dosage: 6.6 MG, QWK
     Route: 042
     Dates: start: 20140605, end: 20140729

REACTIONS (6)
  - Pulmonary haemorrhage [Recovering/Resolving]
  - Diarrhoea [Recovered/Resolved]
  - Pneumonia aspiration [Unknown]
  - Bronchopulmonary aspergillosis [Not Recovered/Not Resolved]
  - Liver disorder [Recovered/Resolved]
  - Stomatitis [Recovered/Resolved]

NARRATIVE: CASE EVENT DATE: 20140625
